FAERS Safety Report 6150425-1 (Version None)
Quarter: 2009Q2

REPORT INFORMATION
  Report Type: 
  Country: None (occurrence: None)
  Receive Date: 20090409
  Receipt Date: 20090402
  Transmission Date: 20091009
  Serious: Yes (Hospitalization)
  Sender: FDA-Public Use
  Company Number: US-ALLERGAN-0801059US

PATIENT
  Sex: Female

DRUGS (12)
  1. BOTOX [Suspect]
     Indication: TORTICOLLIS
     Dosage: 100 UNITS, SINGLE
     Route: 030
     Dates: start: 20080110, end: 20080110
  2. LIPITOR [Concomitant]
     Indication: BLOOD CHOLESTEROL
  3. NEURONTIN [Concomitant]
     Dosage: 300 MG, BID
     Route: 048
  4. FOSAMAX [Concomitant]
     Indication: DRUG USE FOR UNKNOWN INDICATION
  5. WELLBUTRIN [Concomitant]
     Indication: DRUG USE FOR UNKNOWN INDICATION
     Dosage: 150, QD
     Route: 048
  6. EFFEXOR [Concomitant]
     Indication: DRUG USE FOR UNKNOWN INDICATION
     Dosage: 25 MG, BID
     Route: 048
  7. THYROID TAB [Concomitant]
     Indication: DRUG USE FOR UNKNOWN INDICATION
     Dosage: 1 TAB, QD
     Route: 048
  8. PROMETRIUM [Concomitant]
     Dosage: UNK, QD
     Route: 048
  9. PAMELOR [Concomitant]
     Indication: DRUG USE FOR UNKNOWN INDICATION
  10. VIVELLE [Concomitant]
     Indication: DRUG USE FOR UNKNOWN INDICATION
     Dosage: PATCH
     Route: 062
  11. ADVIL [Concomitant]
     Dosage: 1 TAB, PRN
     Route: 048
  12. LYRICA [Concomitant]
     Dosage: 150 MG, BID
     Route: 048

REACTIONS (1)
  - ILEUS PARALYTIC [None]
